FAERS Safety Report 24782624 (Version 1)
Quarter: 2024Q4

REPORT INFORMATION
  Report Type: Spontaneous
  Country: FR (occurrence: FR)
  Receive Date: 20241227
  Receipt Date: 20241227
  Transmission Date: 20250114
  Serious: Yes (Hospitalization, Other)
  Sender: ORGANON
  Company Number: None

PATIENT
  Age: 43 Year
  Sex: Female

DRUGS (27)
  1. NEXPLANON [Suspect]
     Active Substance: ETONOGESTREL
     Dosage: UNK
     Route: 023
     Dates: start: 202012, end: 202102
  2. CHLORMADINONE ACETATE [Suspect]
     Active Substance: CHLORMADINONE ACETATE
     Indication: Hereditary angioedema with normal C1 esterase inhibitor
     Dosage: 10 MG, QD
     Route: 048
     Dates: start: 20140416, end: 20140418
  3. CHLORMADINONE ACETATE [Suspect]
     Active Substance: CHLORMADINONE ACETATE
     Indication: Angioedema
     Dosage: UNK
     Dates: start: 20140710
  4. CHLORMADINONE ACETATE [Suspect]
     Active Substance: CHLORMADINONE ACETATE
     Indication: Amenorrhoea
     Dosage: UNK
     Dates: start: 20140922, end: 20141004
  5. CHLORMADINONE ACETATE [Suspect]
     Active Substance: CHLORMADINONE ACETATE
     Dosage: UNK
     Dates: start: 20141005, end: 20141015
  6. CHLORMADINONE ACETATE [Suspect]
     Active Substance: CHLORMADINONE ACETATE
     Dosage: UNK
     Dates: start: 20150126, end: 20210415
  7. CHLORMADINONE [Suspect]
     Active Substance: CHLORMADINONE
     Dosage: UNK
     Dates: start: 20170428, end: 20170429
  8. CHLORMADINONE [Suspect]
     Active Substance: CHLORMADINONE
     Dosage: UNK
     Dates: start: 20171006, end: 20180124
  9. CHLORMADINONE [Suspect]
     Active Substance: CHLORMADINONE
     Dosage: 0.24 G. 12 TAB/BT
     Dates: start: 20180528, end: 20180613
  10. MONTELUKAST SODIUM [Concomitant]
     Active Substance: MONTELUKAST\MONTELUKAST SODIUM
     Dosage: UNK
  11. EBASTINE [Concomitant]
     Active Substance: EBASTINE
     Dosage: UNK
  12. DESONIDE [Concomitant]
     Active Substance: DESONIDE
     Dosage: UNK
  13. SPARAPLAIE [Concomitant]
     Dosage: UNK
  14. TRANEXAMIC ACID [Concomitant]
     Active Substance: TRANEXAMIC ACID
     Indication: Hereditary angioedema with normal C1 esterase inhibitor
     Dosage: 1 G, BID
  15. ZOPICLONE [Concomitant]
     Active Substance: ZOPICLONE
     Dosage: UNK
  16. HEXOMEDINE TRANSCUTANEE [Concomitant]
     Dosage: 1 DF, BID
  17. TRANEXAMIC ACID [Concomitant]
     Active Substance: TRANEXAMIC ACID
     Dosage: UNK
  18. BROMAZEPAM [Concomitant]
     Active Substance: BROMAZEPAM
     Dosage: UNK
  19. ILAST CARE [Concomitant]
     Dosage: UNK
  20. METEOSPASMIL [Concomitant]
     Dosage: 1 DF, 3-4 TIMES A DAY
  21. POLARAMINE [Concomitant]
     Active Substance: DEXCHLORPHENIRAMINE MALEATE
     Dosage: UNK
  22. DOMPERIDONE [Concomitant]
     Active Substance: DOMPERIDONE
     Dosage: 1 DF, 1-3 TIMES A DAY
  23. TRANEXAMIC ACID [Concomitant]
     Active Substance: TRANEXAMIC ACID
     Dosage: UNK
  24. RACECADOTRIL [Concomitant]
     Active Substance: RACECADOTRIL
     Dosage: 1 DF, BID FOR 5 DAYS
  25. CETIRIZINE [Concomitant]
     Active Substance: CETIRIZINE HYDROCHLORIDE
     Dosage: UNK
  26. ACETAMINOPHEN [Concomitant]
     Active Substance: ACETAMINOPHEN
     Indication: Pain
     Dosage: 1 G, QID
  27. KEPPRA [Concomitant]
     Active Substance: LEVETIRACETAM
     Dosage: 500 MG, BID

REACTIONS (24)
  - Brain oedema [Recovered/Resolved with Sequelae]
  - Meningioma [Recovered/Resolved with Sequelae]
  - Pseudomeningocele [Unknown]
  - Aphasia [Recovered/Resolved]
  - Swelling [Unknown]
  - Pain [Unknown]
  - Nausea [Unknown]
  - Abdominal pain [Unknown]
  - Nasopharyngitis [Unknown]
  - Skin fissures [Unknown]
  - Pilonidal disease [Unknown]
  - Tracheitis [Unknown]
  - Fistula [Unknown]
  - Depression [Unknown]
  - Lumbar puncture [Unknown]
  - Gliosis [Unknown]
  - Memory impairment [Unknown]
  - Dizziness postural [Unknown]
  - Disturbance in attention [Unknown]
  - Anxiety [Unknown]
  - Haemorrhage [Recovered/Resolved]
  - Cognitive disorder [Unknown]
  - Sleep disorder [Unknown]
  - Headache [Unknown]

NARRATIVE: CASE EVENT DATE: 20180101
